FAERS Safety Report 24372035 (Version 2)
Quarter: 2025Q1

REPORT INFORMATION
  Report Type: Spontaneous
  Country: CN (occurrence: CN)
  Receive Date: 20240927
  Receipt Date: 20250102
  Transmission Date: 20250409
  Serious: Yes (Other)
  Sender: PFIZER
  Company Number: CN-PFIZER INC-PV202400124443

PATIENT
  Age: 48 Year
  Sex: Female

DRUGS (1)
  1. CRIZOTINIB [Suspect]
     Active Substance: CRIZOTINIB
     Dosage: 250MG BID
     Route: 048

REACTIONS (16)
  - Gastritis erosive [Unknown]
  - Cholecystectomy [Unknown]
  - Cerebral small vessel ischaemic disease [Unknown]
  - Haemangioma of liver [Unknown]
  - Nodule [Unknown]
  - Hepatic function abnormal [Unknown]
  - Pelvic fluid collection [Unknown]
  - Alanine aminotransferase increased [Unknown]
  - Aspartate aminotransferase increased [Unknown]
  - Blood creatinine increased [Unknown]
  - Uterine leiomyoma [Unknown]
  - Bone density increased [Unknown]
  - Neoplasm progression [Unknown]
  - Intervertebral disc degeneration [Unknown]
  - Intervertebral disc protrusion [Unknown]
  - Sinusitis [Unknown]

NARRATIVE: CASE EVENT DATE: 20240307
